FAERS Safety Report 6930060-5 (Version None)
Quarter: 2010Q3

REPORT INFORMATION
  Report Type: 
  Country: None (occurrence: None)
  Receive Date: 20100809
  Receipt Date: 20100128
  Transmission Date: 20110219
  Serious: No
  Sender: FDA-Public Use
  Company Number: US-001505

PATIENT
  Sex: Male

DRUGS (2)
  1. DEGARELIX (240 MG, 80 MG) [Suspect]
     Indication: PROSTATE CANCER
     Dosage: (240 MG QD SUBCUTANEOUS) , (80 MG 1X/MONTH SUBCUTANEOUS)
     Route: 058
     Dates: start: 20090831, end: 20090831
  2. DEGARELIX (240 MG, 80 MG) [Suspect]
     Indication: PROSTATE CANCER
     Dosage: (240 MG QD SUBCUTANEOUS) , (80 MG 1X/MONTH SUBCUTANEOUS)
     Route: 058
     Dates: start: 20090101

REACTIONS (1)
  - PROSTATIC SPECIFIC ANTIGEN INCREASED [None]
